FAERS Safety Report 6921211-7 (Version None)
Quarter: 2010Q3

REPORT INFORMATION
  Report Type: 
  Country: None (occurrence: None)
  Receive Date: 20100812
  Receipt Date: 20100804
  Transmission Date: 20110219
  Serious: Yes (Hospitalization)
  Sender: FDA-Public Use
  Company Number: A0866140A

PATIENT
  Age: 36 Year
  Sex: Male
  Weight: 111.4 kg

DRUGS (10)
  1. AVANDIA [Suspect]
     Dosage: 8MG PER DAY
     Route: 048
     Dates: start: 20000828, end: 20070101
  2. NEXIUM [Concomitant]
  3. TRICOR [Concomitant]
  4. LANTUS [Concomitant]
  5. LEXAPRO [Concomitant]
  6. METOPROLOL TARTRATE [Concomitant]
  7. ZOCOR [Concomitant]
  8. RANITIDINE [Concomitant]
  9. GLUCOPHAGE [Concomitant]
  10. GLYNASE [Concomitant]

REACTIONS (3)
  - CORONARY ARTERY DISEASE [None]
  - DEPRESSION [None]
  - MYOCARDIAL INFARCTION [None]
